FAERS Safety Report 8319293-3 (Version None)
Quarter: 2012Q2

REPORT INFORMATION
  Report Type: 
  Country: None (occurrence: None)
  Receive Date: 20120427
  Receipt Date: 20120418
  Transmission Date: 20120825
  Serious: No
  Sender: FDA-Public Use
  Company Number: JP-ASTRAZENECA-2012SE12411

PATIENT
  Age: 75 Year
  Sex: Male
  Weight: 74 kg

DRUGS (7)
  1. RHEUMATREX [Concomitant]
     Indication: RHEUMATOID ARTHRITIS
     Dosage: ONCE-TWICE/DAY/WEEK
     Route: 048
  2. CRESTOR [Suspect]
     Indication: DYSLIPIDAEMIA
     Route: 048
  3. ONON [Suspect]
     Indication: NASAL CONGESTION
     Route: 048
     Dates: start: 20120131, end: 20120206
  4. NORVASC [Concomitant]
     Indication: HYPERTENSION
     Route: 048
     Dates: start: 20020801
  5. DIOVAN [Concomitant]
     Indication: HYPERTENSION
     Route: 048
     Dates: start: 20020801
  6. TAMSULOSIN HCL [Concomitant]
     Indication: BENIGN PROSTATIC HYPERPLASIA
     Route: 048
  7. PREDNISOLONE [Concomitant]
     Indication: RHEUMATOID ARTHRITIS
     Route: 048

REACTIONS (2)
  - MALAISE [None]
  - BLOOD CREATINE PHOSPHOKINASE INCREASED [None]
